FAERS Safety Report 5271766-6 (Version None)
Quarter: 2007Q1

REPORT INFORMATION
  Report Type: 
  Country: None (occurrence: None)
  Receive Date: 20070316
  Receipt Date: 20070309
  Transmission Date: 20070707
  Serious: Yes (Death, Life-Threatening, Other)
  Sender: FDA-Public Use
  Company Number: 430002N07JPN

PATIENT
  Age: 71 Year
  Sex: Male

DRUGS (12)
  1. NOVANTRONE [Suspect]
     Dosage: INTRAVENOUS
     Route: 042
     Dates: start: 20060510, end: 20060724
  2. NOVANTRONE [Suspect]
     Dosage: INTRAVENOUS
     Route: 042
     Dates: start: 20060621, end: 20060724
  3. MYLOTARG [Suspect]
     Dosage: 9 MG/M2, INTRAVENOUS
     Route: 042
     Dates: start: 20060405, end: 20060405
  4. MYLOTARG [Suspect]
     Dosage: 9 MG/M2, INTRAVENOUS
     Route: 042
     Dates: start: 20060419, end: 20060419
  5. CYTARABINE [Suspect]
     Dosage: INTRAVENOUS
     Route: 042
     Dates: start: 20060510, end: 20060724
  6. CYTARABINE [Suspect]
     Dosage: INTRAVENOUS
     Route: 042
     Dates: start: 20060621, end: 20060724
  7. ETOPOSIDE [Suspect]
     Dosage: INTRAVENOUS
     Route: 042
     Dates: start: 20060510, end: 20060724
  8. ETOPOSIDE [Suspect]
     Dosage: INTRAVENOUS
     Route: 042
     Dates: start: 20060621, end: 20060724
  9. FLUCONAZOLE [Concomitant]
  10. FAROPENEM SODIUM [Concomitant]
  11. LEVOFLOXACIN [Concomitant]
  12. UBENIMEX [Concomitant]

REACTIONS (5)
  - FEBRILE NEUTROPENIA [None]
  - HEPATIC FUNCTION ABNORMAL [None]
  - PLATELET COUNT DECREASED [None]
  - PNEUMONIA [None]
  - RENAL FAILURE [None]
